FAERS Safety Report 7952966-0 (Version None)
Quarter: 2011Q4

REPORT INFORMATION
  Report Type: 
  Country: None (occurrence: None)
  Receive Date: 20111201
  Receipt Date: 20111121
  Transmission Date: 20120403
  Serious: Yes (Other)
  Sender: FDA-Public Use
  Company Number: PHHY2011AU103052

PATIENT
  Sex: Male

DRUGS (3)
  1. SANDOSTATIN LAR [Suspect]
     Dosage: 20 MG, MONTHLY
  2. SANDOSTATIN LAR [Suspect]
     Indication: VIPOMA
     Dosage: 20 MG, MONTHLY
  3. SANDOSTATIN LAR [Suspect]
     Dosage: 20 MG, MONTHLY

REACTIONS (2)
  - NEURALGIA [None]
  - SCIATICA [None]
